FAERS Safety Report 5580359-2 (Version None)
Quarter: 2007Q4

REPORT INFORMATION
  Report Type: 
  Country: None (occurrence: None)
  Receive Date: 20071228
  Receipt Date: 20071217
  Transmission Date: 20080405
  Serious: Yes (Hospitalization)
  Sender: FDA-Public Use
  Company Number: GRP07000182

PATIENT
  Age: 77 Year
  Sex: Female
  Weight: 84 kg

DRUGS (3)
  1. ACTONEL [Suspect]
     Indication: OSTEOPOROTIC FRACTURE
     Dosage: 35 MG, 1 /WEEK, ORAL
     Route: 048
     Dates: start: 20071002, end: 20071101
  2. LEVOTHYROXINE SODIUM [Concomitant]
  3. ANTIHYPERTENSIVES [Concomitant]

REACTIONS (10)
  - ACUTE PSYCHOSIS [None]
  - CARDIAC DISCOMFORT [None]
  - CHEST DISCOMFORT [None]
  - DEPRESSION [None]
  - DIZZINESS [None]
  - EAR PAIN [None]
  - FORMICATION [None]
  - HEADACHE [None]
  - INFLUENZA LIKE ILLNESS [None]
  - MYALGIA [None]
